FAERS Safety Report 10514335 (Version 1)
Quarter: 2014Q4

REPORT INFORMATION
  Report Type: Spontaneous
  Country: FR (occurrence: FR)
  Receive Date: 20141013
  Receipt Date: 20141013
  Transmission Date: 20150528
  Serious: Yes (Other)
  Sender: FDA-Public Use
  Company Number: FR-BRISTOL-MYERS SQUIBB COMPANY-21475561

PATIENT
  Sex: Female

DRUGS (4)
  1. RETROVIR [Suspect]
     Active Substance: ZIDOVUDINE
     Indication: HIV INFECTION
     Dosage: 35CC/HOUR THEN 18CC/HOUR DURING DELIVERY
  2. REYATAZ [Suspect]
     Active Substance: ATAZANAVIR SULFATE
     Indication: HIV INFECTION
  3. NORVIR [Suspect]
     Active Substance: RITONAVIR
     Indication: HIV INFECTION
     Dosage: 35 CC/HOUR,18 CC/HOUR
  4. TRUVADA [Suspect]
     Active Substance: EMTRICITABINE\TENOFOVIR DISOPROXIL FUMARATE
     Indication: HIV INFECTION
     Dosage: 1DF-200MG/245MG

REACTIONS (3)
  - Pregnancy [Recovered/Resolved]
  - Premature rupture of membranes [Unknown]
  - Live birth [Unknown]

NARRATIVE: CASE EVENT DATE: 20120315
